FAERS Safety Report 19588021 (Version 1)
Quarter: 2021Q3

REPORT INFORMATION
  Report Type: Spontaneous
  Country: US (occurrence: US)
  Receive Date: 20210721
  Receipt Date: 20210721
  Transmission Date: 20211014
  Serious: Yes (Other)
  Sender: FDA-Public Use
  Company Number: US-BAYER-2021-178611

PATIENT
  Age: 53 Year
  Sex: Female

DRUGS (3)
  1. ACETYLSALICYLIC ACID [Suspect]
     Active Substance: ASPIRIN
  2. CLOPIDOGREL [Interacting]
     Active Substance: CLOPIDOGREL BISULFATE
  3. INTEGRILIN [Interacting]
     Active Substance: EPTIFIBATIDE

REACTIONS (3)
  - Gastrointestinal vascular malformation haemorrhagic [None]
  - Labelled drug-drug interaction medication error [None]
  - Rectal haemorrhage [None]
